FAERS Safety Report 8238554-X (Version None)
Quarter: 2012Q1

REPORT INFORMATION
  Report Type: 
  Country: None (occurrence: None)
  Receive Date: 20120327
  Receipt Date: 20120316
  Transmission Date: 20120608
  Serious: Yes (Other)
  Sender: FDA-Public Use
  Company Number: BR-BRISTOL-MYERS SQUIBB COMPANY-16464307

PATIENT
  Age: 78 Year
  Sex: Female
  Weight: 65 kg

DRUGS (5)
  1. CLONAZEPAM [Concomitant]
     Indication: SLEEP DISORDER
     Route: 048
     Dates: start: 20080101
  2. ACTONEL [Concomitant]
     Indication: OSTEOPOROSIS
     Dosage: ALMOST 2 YEARS
     Route: 048
  3. LEXAPRO [Concomitant]
     Indication: DEPRESSION
     Dosage: 1 TAB
     Route: 048
     Dates: start: 20020101
  4. IRBESARTAN + HYDROCHLOROTHIAZIDE [Suspect]
     Indication: HYPERTENSION
     Dosage: 1 DF: 1 TAB 300 MG
     Route: 048
     Dates: start: 20020101
  5. LISADOR [Concomitant]
     Indication: PAIN
     Dosage: 35GTS
     Route: 048

REACTIONS (4)
  - MIGRAINE [None]
  - CHEST PAIN [None]
  - FATIGUE [None]
  - HUMERUS FRACTURE [None]
